FAERS Safety Report 17222189 (Version 1)
Quarter: 2020Q1

REPORT INFORMATION
  Report Type: Report from Study
  Country: US (occurrence: US)
  Receive Date: 20200101
  Receipt Date: 20200101
  Transmission Date: 20200409
  Serious: Yes (Death)
  Sender: FDA-Public Use
  Company Number: US-TAKEDA-2019TUS049641

PATIENT
  Age: 78 Year
  Sex: Female

DRUGS (3)
  1. BRIGATINIB [Suspect]
     Active Substance: BRIGATINIB
     Dosage: 120 MILLIGRAM, QD
     Route: 048
     Dates: start: 20190917
  2. BRIGATINIB [Suspect]
     Active Substance: BRIGATINIB
     Indication: LUNG NEOPLASM MALIGNANT
     Dosage: 90 MILLIGRAM
     Route: 048
     Dates: start: 20190807
  3. BRIGATINIB [Suspect]
     Active Substance: BRIGATINIB
     Dosage: 180 MILLIGRAM, QD
     Route: 048

REACTIONS (9)
  - Death [Fatal]
  - Fatigue [Unknown]
  - Back pain [Unknown]
  - Product dose omission [Unknown]
  - Epistaxis [Unknown]
  - Chills [Unknown]
  - Diarrhoea [Unknown]
  - Cough [Unknown]
  - Decreased appetite [Unknown]

NARRATIVE: CASE EVENT DATE: 20191226
